FAERS Safety Report 6137268-X (Version None)
Quarter: 2009Q1

REPORT INFORMATION
  Report Type: 
  Country: None (occurrence: None)
  Receive Date: 20090330
  Receipt Date: 20090318
  Transmission Date: 20090719
  Serious: Yes (Hospitalization, Other)
  Sender: FDA-Public Use
  Company Number: US-B.I. PHARMACEUTICALS,INC./RIDGEFIELD-2009-BP-03317BP

PATIENT
  Sex: Female

DRUGS (13)
  1. MOBIC [Suspect]
     Indication: OSTEOARTHRITIS
     Dates: start: 20060101, end: 20060701
  2. MOBIC [Suspect]
     Indication: RHEUMATOID ARTHRITIS
  3. CELEBREX [Suspect]
     Indication: OSTEOARTHRITIS
     Dosage: 400MG
  4. CELEBREX [Suspect]
     Indication: RHEUMATOID ARTHRITIS
  5. DIGOXIN [Suspect]
     Indication: ATRIAL FIBRILLATION
  6. ANTIHYPERTENSIVES [Suspect]
     Indication: HYPERTENSION
  7. ALDACTONE [Concomitant]
  8. ATACAND [Concomitant]
  9. DETROL LA [Concomitant]
  10. ASPIRIN [Concomitant]
  11. LASIX [Concomitant]
  12. VENASTAT (HIPPOCASTANI SEMEN) [Concomitant]
  13. VITAMIN E [Concomitant]

REACTIONS (11)
  - BLOOD URIC ACID INCREASED [None]
  - DRUG INEFFECTIVE [None]
  - GLAUCOMA [None]
  - HYPERTENSION [None]
  - LOCALISED INFECTION [None]
  - MALAISE [None]
  - OEDEMA PERIPHERAL [None]
  - SKIN DISCOLOURATION [None]
  - THROMBOSIS [None]
  - URINARY INCONTINENCE [None]
  - WEIGHT DECREASED [None]
